FAERS Safety Report 15148797 (Version 1)
Quarter: 2018Q3

REPORT INFORMATION
  Report Type: Spontaneous
  Country: CH (occurrence: CH)
  Receive Date: 20180716
  Receipt Date: 20180716
  Transmission Date: 20181010
  Serious: Yes (Other)
  Sender: FDA-Public Use
  Company Number: CH-SAKK-2018SA179658AA

PATIENT
  Sex: Male

DRUGS (7)
  1. ATORVASTATIN PFIZER [Concomitant]
     Active Substance: ATORVASTATIN
  2. ZESTRIL [Concomitant]
     Active Substance: LISINOPRIL
  3. CONCOR [Concomitant]
     Active Substance: BISOPROLOL FUMARATE
     Dosage: UNK UNK, UNK
     Route: 048
  4. CORDARONE [Concomitant]
     Active Substance: AMIODARONE HYDROCHLORIDE
  5. MAGNESIUM DIASPORAL [MAGNESIUM CITRATE] [Concomitant]
  6. ACETYLSALICYLIC ACID [Suspect]
     Active Substance: ASPIRIN
     Dosage: UNK UNK, UNK
     Route: 048
     Dates: end: 20180503
  7. PLAVIX [Suspect]
     Active Substance: CLOPIDOGREL BISULFATE

REACTIONS (2)
  - Shock haemorrhagic [Recovered/Resolved]
  - Epistaxis [Recovered/Resolved]

NARRATIVE: CASE EVENT DATE: 20180503
